FAERS Safety Report 5013496-1 (Version None)
Quarter: 2006Q2

REPORT INFORMATION
  Report Type: 
  Country: None (occurrence: None)
  Receive Date: 20060530
  Receipt Date: 20060227
  Transmission Date: 20061013
  Serious: Yes (Life-Threatening, Hospitalization, Other)
  Sender: FDA-Public Use
  Company Number: US-MERCK-0602USA05754

PATIENT
  Age: 47 Year
  Sex: Female
  Weight: 64 kg

DRUGS (5)
  1. SINGULAIR [Suspect]
     Indication: RHINITIS
     Route: 048
     Dates: start: 20020227, end: 20020701
  2. SINGULAIR [Suspect]
     Route: 055
     Dates: start: 20011101, end: 20020201
  3. SINGULAIR [Suspect]
     Indication: ASTHMA
     Route: 048
     Dates: start: 20020227, end: 20020701
  4. SINGULAIR [Suspect]
     Route: 055
     Dates: start: 20011101, end: 20020201
  5. FLOVENT [Concomitant]
     Indication: ASTHMA
     Route: 065
     Dates: start: 20011201, end: 20020301

REACTIONS (2)
  - ALLERGIC GRANULOMATOUS ANGIITIS [None]
  - DRUG ADMINISTRATION ERROR [None]
